FAERS Safety Report 4374072-7 (Version None)
Quarter: 2004Q2

REPORT INFORMATION
  Report Type: 
  Country: None (occurrence: None)
  Receive Date: 20040607
  Receipt Date: 20030220
  Transmission Date: 20050107
  Serious: Yes (Other)
  Sender: FDA-Public Use
  Company Number: GB-ROCHE-332147

PATIENT
  Age: 47 Year
  Sex: Male
  Weight: 74 kg

DRUGS (7)
  1. DACLIZUMAB [Suspect]
     Route: 042
     Dates: start: 20020718, end: 20020718
  2. DACLIZUMAB [Suspect]
     Route: 042
     Dates: start: 20020801, end: 20020912
  3. MYCOPHENOLATE MOFETIL [Suspect]
     Route: 048
     Dates: start: 20020718
  4. NEORAL [Suspect]
     Route: 065
     Dates: start: 20020718
  5. PREDNISOLONE [Suspect]
     Route: 065
     Dates: start: 20020719
  6. ATENOLOL [Concomitant]
     Dates: start: 20020801
  7. NIFEDIPINE [Concomitant]
     Dates: start: 20020801

REACTIONS (1)
  - BASAL CELL CARCINOMA [None]
